FAERS Safety Report 12313777 (Version 2)
Quarter: 2025Q4

REPORT INFORMATION
  Report Type: Spontaneous
  Country: US (occurrence: None)
  Receive Date: 20160428
  Receipt Date: 20251105
  Transmission Date: 20260118
  Serious: Yes (Hospitalization, Other)
  Sender: ALKERMES
  Company Number: US-ALKERMES INC.-ALK-2015-000498

PATIENT
  Sex: Male

DRUGS (1)
  1. VIVITROL [Suspect]
     Active Substance: NALTREXONE
     Indication: Product used for unknown indication
     Dosage: 380 MG, QMO

REACTIONS (17)
  - Hypogonadism [Not Recovered/Not Resolved]
  - Appendix cancer metastatic [Not Recovered/Not Resolved]
  - Peritoneal disorder [Not Recovered/Not Resolved]
  - Depression suicidal [Recovering/Resolving]
  - Suicidal ideation [Recovering/Resolving]
  - Depersonalisation/derealisation disorder [Recovering/Resolving]
  - Morbid thoughts [Recovering/Resolving]
  - Blood testosterone decreased [Recovered/Resolved]
  - Hormone level abnormal [Recovering/Resolving]
  - Crying [Recovering/Resolving]
  - Loss of personal independence in daily activities [Recovering/Resolving]
  - Agitation [Recovering/Resolving]
  - Weight decreased [Unknown]
  - Adverse drug reaction [Recovering/Resolving]
  - Panic attack [Recovering/Resolving]
  - Malaise [Recovered/Resolved]
  - Anxiety [Recovering/Resolving]

NARRATIVE: CASE EVENT DATE: 20110101
